FAERS Safety Report 23865246 (Version 2)
Quarter: 2024Q2

REPORT INFORMATION
  Report Type: Report from Study
  Country: US (occurrence: US)
  Receive Date: 20240517
  Receipt Date: 20240521
  Transmission Date: 20240716
  Serious: Yes (Other)
  Sender: FDA-Public Use
  Company Number: US-ABBVIE-5763327

PATIENT
  Sex: Male

DRUGS (3)
  1. SKYRIZI [Suspect]
     Active Substance: RISANKIZUMAB-RZAA
     Indication: Psoriasis
     Dosage: DOSAGE: 150 MG/ML STRENGTH: 150MG/ML, WEEK 0
     Route: 058
     Dates: start: 20240122, end: 20240122
  2. SKYRIZI [Suspect]
     Active Substance: RISANKIZUMAB-RZAA
     Dosage: DOSAGE: 150 MG/ML STRENGTH: 150MG/ML, WEEK 4
     Route: 058
     Dates: start: 20240219, end: 20240219
  3. SKYRIZI [Suspect]
     Active Substance: RISANKIZUMAB-RZAA
     Dosage: DOSAGE: 150 MG/ML STRENGTH: 150MG/ML, EVERY 12 WEEKS THEREAFTER
     Route: 058
     Dates: start: 202405

REACTIONS (6)
  - Basosquamous carcinoma [Unknown]
  - Inappropriate schedule of product administration [Unknown]
  - Streptococcal infection [Unknown]
  - Procedural pain [Unknown]
  - Staphylococcal infection [Unknown]
  - Post procedural erythema [Unknown]

NARRATIVE: CASE EVENT DATE: 20240101
